FAERS Safety Report 8348557-2 (Version None)
Quarter: 2012Q2

REPORT INFORMATION
  Report Type: 
  Country: None (occurrence: None)
  Receive Date: 20120509
  Receipt Date: 20120426
  Transmission Date: 20120825
  Serious: Yes (Death, Life-Threatening, Hospitalization, Other)
  Sender: FDA-Public Use
  Company Number: US-MYLANLABS-2009AL002055

PATIENT
  Age: 64 Year
  Sex: Male
  Weight: 136.08 kg

DRUGS (9)
  1. ASPIRIN [Concomitant]
  2. AVALIDE [Concomitant]
  3. LEVOTHYROXINE SODIUM [Concomitant]
  4. COUMADIN [Concomitant]
  5. SIMVASTATIN [Concomitant]
  6. EFFEXOR [Concomitant]
  7. AMIODARONE HCL [Concomitant]
  8. ZOCOR [Concomitant]
  9. DIGOXIN [Suspect]
     Route: 048
     Dates: end: 20080325

REACTIONS (55)
  - ENDOTRACHEAL INTUBATION [None]
  - BRAIN HERNIATION [None]
  - HYPOXIA [None]
  - ACUTE RESPIRATORY FAILURE [None]
  - POOR VENOUS ACCESS [None]
  - PAIN [None]
  - DEATH [None]
  - MENTAL STATUS CHANGES [None]
  - MOTOR DYSFUNCTION [None]
  - SEDATION [None]
  - CARDIOVERSION [None]
  - BRONCHOSCOPY [None]
  - CEREBRAL HYPOPERFUSION [None]
  - PUPILLARY REFLEX IMPAIRED [None]
  - INJURY [None]
  - BRAIN DEATH [None]
  - ATRIAL FIBRILLATION [None]
  - HYPERTENSION [None]
  - OBESITY [None]
  - ANXIETY [None]
  - INTERVERTEBRAL DISC OPERATION [None]
  - EX-TOBACCO USER [None]
  - SPEECH DISORDER [None]
  - DEPRESSED LEVEL OF CONSCIOUSNESS [None]
  - APHASIA [None]
  - DISEASE PROGRESSION [None]
  - ILL-DEFINED DISORDER [None]
  - DYSARTHRIA [None]
  - ASTHENIA [None]
  - HAEMORRHAGE INTRACRANIAL [None]
  - UNRESPONSIVE TO STIMULI [None]
  - UPPER AIRWAY OBSTRUCTION [None]
  - BIOPSY KIDNEY ABNORMAL [None]
  - ARRHYTHMIA [None]
  - ECONOMIC PROBLEM [None]
  - CEREBRAL HAEMORRHAGE [None]
  - CORONARY ARTERY DISEASE [None]
  - CATARACT OPERATION [None]
  - ALCOHOL USE [None]
  - FLUSHING [None]
  - BIOPSY LIVER ABNORMAL [None]
  - MECHANICAL VENTILATION [None]
  - HYPOTHYROIDISM [None]
  - BRAIN SCAN ABNORMAL [None]
  - EXOPHTHALMOS [None]
  - LOSS OF CONSCIOUSNESS [None]
  - SLEEP APNOEA SYNDROME [None]
  - HEMIPARESIS [None]
  - BRONCHOSCOPY ABNORMAL [None]
  - EMOTIONAL DISTRESS [None]
  - SOCIAL AVOIDANT BEHAVIOUR [None]
  - RENAL FAILURE ACUTE [None]
  - BLOOD CREATININE INCREASED [None]
  - DEPRESSION [None]
  - CHEST X-RAY ABNORMAL [None]
